FAERS Safety Report 21226884 (Version 2)
Quarter: 2022Q3

REPORT INFORMATION
  Report Type: Report from Study
  Country: ZA (occurrence: ZA)
  Receive Date: 20220818
  Receipt Date: 20220913
  Transmission Date: 20221026
  Serious: Yes (Other)
  Sender: FDA-Public Use
  Company Number: ZA-BAYER-2022A113724

PATIENT
  Sex: Female

DRUGS (19)
  1. EYLEA [Suspect]
     Active Substance: AFLIBERCEPT
     Indication: Age-related macular degeneration
     Dosage: 1 DF, ONCE, 1 X VIAL PER EYE; SOLUTION FOR INJECTION
     Dates: start: 20200612, end: 20200612
  2. EYLEA [Suspect]
     Active Substance: AFLIBERCEPT
     Dosage: 1 DF, ONCE, 1 X VIAL PER EYE; SOLUTION FOR INJECTION
     Dates: start: 20200710, end: 20200710
  3. EYLEA [Suspect]
     Active Substance: AFLIBERCEPT
     Dosage: 1 DF, ONCE, 1 X VIAL PER EYE; SOLUTION FOR INJECTION
     Dates: start: 20200807, end: 20200807
  4. EYLEA [Suspect]
     Active Substance: AFLIBERCEPT
     Dosage: 1 DF, ONCE, 1 X VIAL PER EYE; SOLUTION FOR INJECTION
     Dates: start: 20200911, end: 20200911
  5. EYLEA [Suspect]
     Active Substance: AFLIBERCEPT
     Dosage: 1 DF, ONCE, 1 X VIAL PER EYE; SOLUTION FOR INJECTION
     Dates: start: 20201106, end: 20201106
  6. EYLEA [Suspect]
     Active Substance: AFLIBERCEPT
     Dosage: 1 DF, ONCE, 1 X VIAL PER EYE; SOLUTION FOR INJECTION
     Dates: start: 20201211, end: 20201211
  7. EYLEA [Suspect]
     Active Substance: AFLIBERCEPT
     Dosage: 1 DF, ONCE, 1 X VIAL PER EYE; SOLUTION FOR INJECTION
     Dates: start: 20210129, end: 20210129
  8. EYLEA [Suspect]
     Active Substance: AFLIBERCEPT
     Dosage: 1 DF, ONCE, 1 X VIAL PER EYE; SOLUTION FOR INJECTION
     Dates: start: 20210312, end: 20210312
  9. EYLEA [Suspect]
     Active Substance: AFLIBERCEPT
     Dosage: 1 DF, ONCE, 1 X VIAL PER EYE; SOLUTION FOR INJECTION
     Dates: start: 20210514, end: 20210514
  10. EYLEA [Suspect]
     Active Substance: AFLIBERCEPT
     Dosage: 1 DF, ONCE, 1 X VIAL PER EYE; SOLUTION FOR INJECTION
     Dates: start: 20210709, end: 20210709
  11. EYLEA [Suspect]
     Active Substance: AFLIBERCEPT
     Dosage: 1 DF, ONCE, 1 X VIAL PER EYE; SOLUTION FOR INJECTION
     Dates: start: 20210820, end: 20210820
  12. EYLEA [Suspect]
     Active Substance: AFLIBERCEPT
     Dosage: 1 DF, ONCE, 1 X VIAL PER EYE; SOLUTION FOR INJECTION
     Dates: start: 20211022, end: 20211022
  13. EYLEA [Suspect]
     Active Substance: AFLIBERCEPT
     Dosage: 1 DF, ONCE, 1 X VIAL PER EYE; SOLUTION FOR INJECTION
     Dates: start: 20211210, end: 20211210
  14. EYLEA [Suspect]
     Active Substance: AFLIBERCEPT
     Dosage: 1 DF, ONCE, 1 X VIAL PER EYE; SOLUTION FOR INJECTION
     Dates: start: 20220211, end: 20220211
  15. EYLEA [Suspect]
     Active Substance: AFLIBERCEPT
     Dosage: 1 DF, ONCE, 1 X VIAL PER EYE; SOLUTION FOR INJECTION
     Dates: start: 20220318, end: 20220318
  16. EYLEA [Suspect]
     Active Substance: AFLIBERCEPT
     Dosage: 1 DF, ONCE, 1 X VIAL PER EYE; SOLUTION FOR INJECTION
     Dates: start: 20220318, end: 20220318
  17. EYLEA [Suspect]
     Active Substance: AFLIBERCEPT
     Dosage: 1 DF, ONCE, 1 X VIAL PER EYE; SOLUTION FOR INJECTION
     Dates: start: 20220513, end: 20220513
  18. EYLEA [Suspect]
     Active Substance: AFLIBERCEPT
     Dosage: 1 DF, ONCE, 1 X VIAL PER EYE; SOLUTION FOR INJECTION
     Dates: start: 20220624, end: 20220624
  19. EYLEA [Suspect]
     Active Substance: AFLIBERCEPT
     Dosage: UNK, 1 X VIAL PER EYE; SOLUTION FOR INJECTION
     Dates: start: 20220729

REACTIONS (3)
  - Blindness [Unknown]
  - Surgery [Unknown]
  - Inappropriate schedule of product administration [Unknown]

NARRATIVE: CASE EVENT DATE: 20220701
